FAERS Safety Report 18303157 (Version 39)
Quarter: 2025Q3

REPORT INFORMATION
  Report Type: Report from Study
  Country: US (occurrence: US)
  Receive Date: 20200924
  Receipt Date: 20250812
  Transmission Date: 20251021
  Serious: Yes (Hospitalization, Other)
  Sender: TAKEDA
  Company Number: US-SHIRE-US202031062

PATIENT
  Age: 66 Year
  Sex: Female
  Weight: 69 kg

DRUGS (57)
  1. HUMAN IMMUNOGLOBULIN G [Suspect]
     Active Substance: HUMAN IMMUNOGLOBULIN G
     Indication: Immunodeficiency common variable
     Dosage: 10 GRAM, 1/WEEK
     Dates: start: 20200228
  2. HUMAN IMMUNOGLOBULIN G [Suspect]
     Active Substance: HUMAN IMMUNOGLOBULIN G
     Dosage: 40 GRAM, Q4WEEKS
  3. HUMAN IMMUNOGLOBULIN G [Suspect]
     Active Substance: HUMAN IMMUNOGLOBULIN G
     Dosage: 40 GRAM, Q4WEEKS
  4. HUMAN IMMUNOGLOBULIN G [Suspect]
     Active Substance: HUMAN IMMUNOGLOBULIN G
     Dosage: UNK, Q6WEEKS
     Dates: start: 2020
  5. HUMAN IMMUNOGLOBULIN G [Suspect]
     Active Substance: HUMAN IMMUNOGLOBULIN G
     Dosage: 40 GRAM, Q6WEEKS
     Dates: start: 20210816
  6. EPINEPHRINE [Concomitant]
     Active Substance: EPINEPHRINE
  7. ACETAMINOPHEN [Concomitant]
     Active Substance: ACETAMINOPHEN
  8. DICLOFENAC SODIUM [Concomitant]
     Active Substance: DICLOFENAC SODIUM
  9. METOCLOPRAMIDE HYDROCHLORIDE [Concomitant]
     Active Substance: METOCLOPRAMIDE HYDROCHLORIDE
  10. OMEPRAZOLE [Concomitant]
     Active Substance: OMEPRAZOLE
  11. ONDANSETRON HYDROCHLORIDE [Concomitant]
     Active Substance: ONDANSETRON HYDROCHLORIDE
  12. ACETAMINOPHEN\HYDROCODONE [Concomitant]
     Active Substance: ACETAMINOPHEN\HYDROCODONE
  13. SINGULAIR [Concomitant]
     Active Substance: MONTELUKAST SODIUM
  14. SODIUM CHLORIDE [Concomitant]
     Active Substance: SODIUM CHLORIDE
  15. ALBUTEROL SULFATE [Concomitant]
     Active Substance: ALBUTEROL SULFATE
  16. VITAMIN E [Concomitant]
     Active Substance: .ALPHA.-TOCOPHEROL
  17. ALBUTEROL SULFATE [Concomitant]
     Active Substance: ALBUTEROL SULFATE
  18. BISACODYL [Concomitant]
     Active Substance: BISACODYL
  19. TRELEGY ELLIPTA [Concomitant]
     Active Substance: FLUTICASONE FUROATE\UMECLIDINIUM BROMIDE\VILANTEROL TRIFENATATE
  20. LIDOCAINE [Concomitant]
     Active Substance: LIDOCAINE
  21. EPIPEN [Concomitant]
     Active Substance: EPINEPHRINE
  22. LEXAPRO [Concomitant]
     Active Substance: ESCITALOPRAM OXALATE
  23. SIMVASTATIN [Concomitant]
     Active Substance: SIMVASTATIN
  24. METOPROLOL SUCCINATE [Concomitant]
     Active Substance: METOPROLOL SUCCINATE
  25. Digestive Advantage [Concomitant]
     Indication: Product used for unknown indication
  26. OXYGEN [Concomitant]
     Active Substance: OXYGEN
  27. SYNTHROID [Concomitant]
     Active Substance: LEVOTHYROXINE SODIUM
  28. IRON [Concomitant]
     Active Substance: IRON
  29. METFORMIN HYDROCHLORIDE [Concomitant]
     Active Substance: METFORMIN HYDROCHLORIDE
  30. DIPHENHYDRAMINE HYDROCHLORIDE [Concomitant]
     Active Substance: DIPHENHYDRAMINE HYDROCHLORIDE
  31. CYCLOBENZAPRINE [Concomitant]
     Active Substance: CYCLOBENZAPRINE
  32. VITAMIN D3 [Concomitant]
     Active Substance: CHOLECALCIFEROL
  33. DIPHENHYDRAMINE HYDROCHLORIDE [Concomitant]
     Active Substance: DIPHENHYDRAMINE HYDROCHLORIDE
  34. SODIUM CHLORIDE [Concomitant]
     Active Substance: SODIUM CHLORIDE
  35. CHANTIX [Concomitant]
     Active Substance: VARENICLINE TARTRATE
  36. VITAMIN C [Concomitant]
     Active Substance: ASCORBIC ACID
  37. MIRALAX [Concomitant]
     Active Substance: POLYETHYLENE GLYCOL 3350
  38. NORCO [Concomitant]
     Active Substance: ACETAMINOPHEN\HYDROCODONE BITARTRATE
  39. APPLE CIDER VINEGAR [Concomitant]
     Active Substance: APPLE CIDER VINEGAR
  40. DIPHENHYDRAMINE [Concomitant]
     Active Substance: DIPHENHYDRAMINE
  41. VARENICLINE TARTRATE [Concomitant]
     Active Substance: VARENICLINE TARTRATE
  42. NYSTATIN [Concomitant]
     Active Substance: NYSTATIN
  43. HYDROXYZINE HYDROCHLORIDE [Concomitant]
     Active Substance: HYDROXYZINE HYDROCHLORIDE
  44. LISINOPRIL AND HYDROCHLOROTHIAZIDE [Concomitant]
     Active Substance: HYDROCHLOROTHIAZIDE\LISINOPRIL
  45. Lmx [Concomitant]
  46. VENTOLIN [Concomitant]
     Active Substance: ALBUTEROL SULFATE
  47. ANORO ELLIPTA [Concomitant]
     Active Substance: UMECLIDINIUM BROMIDE\VILANTEROL TRIFENATATE
  48. COLACE [Concomitant]
     Active Substance: DOCUSATE SODIUM
  49. AZITHROMYCIN [Concomitant]
     Active Substance: AZITHROMYCIN
  50. MECLIZINE HYDROCHLORIDE [Concomitant]
     Active Substance: MECLIZINE HYDROCHLORIDE
  51. DRAMAMINE LESS DROWSY FORMULA [Concomitant]
     Active Substance: MECLIZINE HYDROCHLORIDE
  52. AMOXICILLIN [Concomitant]
     Active Substance: AMOXICILLIN
  53. SUMATRIPTAN [Concomitant]
     Active Substance: SUMATRIPTAN
  54. CHOLECALCIFEROL [Concomitant]
     Active Substance: CHOLECALCIFEROL
  55. PREDNISONE [Concomitant]
     Active Substance: PREDNISONE
  56. TYLENOL [Concomitant]
     Active Substance: ACETAMINOPHEN
  57. PLAQUENIL [Concomitant]
     Active Substance: HYDROXYCHLOROQUINE SULFATE

REACTIONS (39)
  - Respiratory tract infection [Not Recovered/Not Resolved]
  - Respiratory syncytial virus infection [Unknown]
  - Oesophageal candidiasis [Unknown]
  - Lower respiratory tract infection [Unknown]
  - Gastric haemorrhage [Unknown]
  - Gastrointestinal haemorrhage [Unknown]
  - COVID-19 [Recovering/Resolving]
  - Hypoxia [Unknown]
  - Weight decreased [Unknown]
  - Viral infection [Unknown]
  - Illness [Unknown]
  - Gastrointestinal viral infection [Unknown]
  - Gastrointestinal disorder [Unknown]
  - Candida infection [Unknown]
  - Bacterial infection [Unknown]
  - Bronchitis [Unknown]
  - Cardiac disorder [Unknown]
  - Productive cough [Unknown]
  - Product dose omission issue [Unknown]
  - Upper respiratory tract infection [Recovered/Resolved]
  - Sinusitis [Unknown]
  - Influenza [Unknown]
  - Infusion site oedema [Not Recovered/Not Resolved]
  - Oropharyngeal pain [Unknown]
  - Pain [Unknown]
  - Abdominal pain upper [Unknown]
  - Malaise [Recovering/Resolving]
  - Dyspnoea [Unknown]
  - Musculoskeletal chest pain [Unknown]
  - Hypertension [Unknown]
  - Chest discomfort [Unknown]
  - Vomiting [Unknown]
  - Migraine [Unknown]
  - Pyrexia [Unknown]
  - Headache [Unknown]
  - Treatment noncompliance [Unknown]
  - Nausea [Unknown]
  - Fatigue [Unknown]
  - Inappropriate schedule of product administration [Unknown]

NARRATIVE: CASE EVENT DATE: 20220301
